FAERS Safety Report 20077871 (Version 1)
Quarter: 2021Q4

REPORT INFORMATION
  Report Type: Spontaneous
  Country: CN (occurrence: None)
  Receive Date: 20211116
  Receipt Date: 20211116
  Transmission Date: 20220303
  Serious: Yes (Other)
  Sender: FDA-Public Use
  Company Number: CN-ROCHE-2953395

PATIENT
  Sex: Female
  Weight: 39 kg

DRUGS (3)
  1. XELODA [Suspect]
     Active Substance: CAPECITABINE
     Indication: Hepatobiliary cancer
     Route: 048
     Dates: start: 20211004, end: 20211017
  2. SINTILIMAB [Suspect]
     Active Substance: SINTILIMAB
     Indication: Hepatobiliary cancer
     Route: 041
     Dates: start: 20211004, end: 20211004
  3. OXALIPLATIN [Suspect]
     Active Substance: OXALIPLATIN
     Indication: Hepatobiliary cancer
     Route: 041
     Dates: start: 20211004, end: 20211004

REACTIONS (3)
  - Platelet count decreased [Recovering/Resolving]
  - Off label use [Unknown]
  - Platelet count decreased [Recovering/Resolving]

NARRATIVE: CASE EVENT DATE: 20211101
